FAERS Safety Report 14847614 (Version 1)
Quarter: 2018Q2

REPORT INFORMATION
  Report Type: Spontaneous
  Country: US (occurrence: US)
  Receive Date: 20180504
  Receipt Date: 20180504
  Transmission Date: 20180711
  Serious: Yes (Hospitalization)
  Sender: FDA-Public Use
  Company Number: US-COLLEGIUM PHARMACEUTICAL, INC.-2018CGM00131

PATIENT
  Age: 51 Year
  Sex: Male

DRUGS (3)
  1. XTAMPZA ER [Suspect]
     Active Substance: OXYCODONE
     Dosage: 36 MG, 4X/DAY
  2. OXYCODONE (NON-COMPANY) [Suspect]
     Active Substance: OXYCODONE
  3. NARCAN [Suspect]
     Active Substance: NALOXONE HYDROCHLORIDE

REACTIONS (2)
  - Suicide attempt [Unknown]
  - Intentional product misuse [Unknown]

NARRATIVE: CASE EVENT DATE: 201804
